FAERS Safety Report 5386198-X (Version None)
Quarter: 2007Q3

REPORT INFORMATION
  Report Type: 
  Country: None (occurrence: None)
  Receive Date: 20070713
  Receipt Date: 20070705
  Transmission Date: 20080115
  Serious: Yes (Other)
  Sender: FDA-Public Use
  Company Number: PHFR2007GB01689

PATIENT
  Age: 28 Year
  Sex: Male

DRUGS (1)
  1. TEGRETOL [Suspect]
     Indication: EPILEPSY
     Dosage: 800MG MANE, 600MG NOCTE
     Route: 048
     Dates: start: 20040101

REACTIONS (3)
  - CEREBROVASCULAR OPERATION [None]
  - INFERTILITY MALE [None]
  - SPERM COUNT ABNORMAL [None]
